FAERS Safety Report 15994383 (Version 2)
Quarter: 2019Q1

REPORT INFORMATION
  Report Type: Spontaneous
  Country: US (occurrence: US)
  Receive Date: 20190222
  Receipt Date: 20190222
  Transmission Date: 20190418
  Serious: No
  Sender: FDA-Public Use
  Company Number: US-PFIZER INC-2019076166

PATIENT
  Age: 70 Year

DRUGS (29)
  1. CLINDAMYCIN HCL [Suspect]
     Active Substance: CLINDAMYCIN HYDROCHLORIDE
     Dosage: UNK
  2. BENZOIN [Suspect]
     Active Substance: ALOE\BENZOIN\LIQUIDAMBAR STYRACIFLUA RESIN\TOLU BALSAM
     Dosage: UNK
  3. DEXTRAN [Suspect]
     Active Substance: DEXTRAN
     Dosage: UNK
  4. VIASPAN (ADENOSINE\ALLOPURINOL\GLUTATHIONE\MAGNESIUM SULFATE\POTASSIUM PHOSPHATE, MONOBASIC) [Suspect]
     Active Substance: ADENOSINE\ALLOPURINOL\GLUTATHIONE\MAGNESIUM SULFATE\POTASSIUM PHOSPHATE, MONOBASIC
     Dosage: UNK
  5. PROSCAR [Suspect]
     Active Substance: FINASTERIDE
     Dosage: UNK
  6. COMPAZINE [Suspect]
     Active Substance: PROCHLORPERAZINE MALEATE
     Dosage: UNK
  7. AZMACORT [Suspect]
     Active Substance: TRIAMCINOLONE ACETONIDE
     Dosage: UNK
  8. CARDIZEM [Suspect]
     Active Substance: DILTIAZEM HYDROCHLORIDE
     Dosage: UNK
  9. IMDUR [Suspect]
     Active Substance: ISOSORBIDE MONONITRATE
     Dosage: UNK
  10. KADIAN [Suspect]
     Active Substance: MORPHINE SULFATE
     Dosage: UNK
  11. FENTANYL CITRATE. [Suspect]
     Active Substance: FENTANYL CITRATE
     Dosage: UNK
  12. ZALEPLON. [Suspect]
     Active Substance: ZALEPLON
     Dosage: UNK
  13. ZETIA [Suspect]
     Active Substance: EZETIMIBE
     Dosage: UNK
  14. NORCO [Suspect]
     Active Substance: ACETAMINOPHEN\HYDROCODONE BITARTRATE
     Dosage: UNK
  15. PALLADONE [Suspect]
     Active Substance: HYDROMORPHONE HYDROCHLORIDE
     Dosage: UNK
  16. OXYCODONE [Suspect]
     Active Substance: OXYCODONE
     Dosage: UNK
  17. GABAPENTIN. [Suspect]
     Active Substance: GABAPENTIN
     Dosage: UNK
  18. PROMETHAZINE HCL [Suspect]
     Active Substance: PROMETHAZINE HYDROCHLORIDE
     Dosage: UNK
  19. CRESTOR [Suspect]
     Active Substance: ROSUVASTATIN CALCIUM
     Dosage: UNK
  20. TIZANIDINE. [Suspect]
     Active Substance: TIZANIDINE
     Dosage: UNK
  21. NABUMETONE. [Suspect]
     Active Substance: NABUMETONE
     Dosage: UNK
  22. WELCHOL [Suspect]
     Active Substance: COLESEVELAM HYDROCHLORIDE
     Dosage: UNK
  23. MELOXICAM. [Suspect]
     Active Substance: MELOXICAM
     Dosage: UNK
  24. METHADONE [Suspect]
     Active Substance: METHADONE HYDROCHLORIDE
     Dosage: UNK
  25. ACIPHEX [Suspect]
     Active Substance: RABEPRAZOLE SODIUM
     Dosage: UNK
  26. INDERAL [Suspect]
     Active Substance: PROPRANOLOL HYDROCHLORIDE
     Dosage: UNK
  27. PLAQUENIL [Suspect]
     Active Substance: HYDROXYCHLOROQUINE SULFATE
     Dosage: UNK
  28. PAROXETINE. [Suspect]
     Active Substance: PAROXETINE
     Dosage: UNK
  29. SIMVASTATIN. [Suspect]
     Active Substance: SIMVASTATIN
     Dosage: UNK

REACTIONS (1)
  - Drug hypersensitivity [Unknown]
